FAERS Safety Report 5674743-6 (Version None)
Quarter: 2008Q2

REPORT INFORMATION
  Report Type: 
  Country: None (occurrence: None)
  Receive Date: 20080304
  Receipt Date: 20070731
  Transmission Date: 20081010
  Serious: Yes (Other)
  Sender: FDA-Public Use
  Company Number: WAES 0708USA01042

PATIENT
  Age: 71 Year
  Sex: Male

DRUGS (1)
  1. PRINIVIL [Suspect]
     Dosage: PO
     Route: 048

REACTIONS (1)
  - RENAL FAILURE ACUTE [None]
